FAERS Safety Report 4830432-9 (Version None)
Quarter: 2005Q4

REPORT INFORMATION
  Report Type: 
  Country: None (occurrence: None)
  Receive Date: 20051117
  Receipt Date: 20051108
  Transmission Date: 20060501
  Serious: Yes (Other)
  Sender: FDA-Public Use
  Company Number: DE-BRISTOL-MYERS SQUIBB COMPANY-13175690

PATIENT
  Age: 45 Year
  Sex: Male
  Weight: 98 kg

DRUGS (2)
  1. PRAVASIN [Suspect]
     Indication: HYPERCHOLESTEROLAEMIA
     Dates: start: 20050101
  2. EZETROL [Concomitant]
     Dates: start: 20051001

REACTIONS (3)
  - ALANINE AMINOTRANSFERASE INCREASED [None]
  - ASPARTATE AMINOTRANSFERASE INCREASED [None]
  - TENDONITIS [None]
